FAERS Safety Report 13650322 (Version 1)
Quarter: 2017Q2

REPORT INFORMATION
  Report Type: Report from Study
  Country: BR (occurrence: BR)
  Receive Date: 20170614
  Receipt Date: 20170614
  Transmission Date: 20170830
  Serious: Yes (Hospitalization, Other)
  Sender: FDA-Public Use
  Company Number: PHHY2017BR087280

PATIENT
  Age: 70 Year
  Sex: Female

DRUGS (2)
  1. CALCIUM [Concomitant]
     Active Substance: CALCIUM
     Indication: PRODUCT USED FOR UNKNOWN INDICATION
     Route: 065
  2. ACLASTA [Suspect]
     Active Substance: ZOLEDRONIC ACID
     Indication: OSTEOPOROSIS
     Dosage: 1 DF, Q12MO (5 MG/100 ML)
     Route: 042

REACTIONS (12)
  - Pain [Unknown]
  - Spinal disorder [Unknown]
  - Hyperhidrosis [Unknown]
  - Condition aggravated [Unknown]
  - Fall [Unknown]
  - Arthritis [Unknown]
  - Osteoarthritis [Unknown]
  - Pneumonia viral [Unknown]
  - Balance disorder [Unknown]
  - Pain in extremity [Unknown]
  - Abasia [Unknown]
  - Fibrosis [Unknown]

NARRATIVE: CASE EVENT DATE: 20170608
